FAERS Safety Report 22354528 (Version 1)
Quarter: 2023Q2

REPORT INFORMATION
  Report Type: Report from Study
  Country: KR (occurrence: KR)
  Receive Date: 20230523
  Receipt Date: 20230523
  Transmission Date: 20230721
  Serious: Yes (Other)
  Sender: FDA-Public Use
  Company Number: KR-KOWA-19JP002612AA

PATIENT
  Age: 47 Year
  Sex: Female

DRUGS (18)
  1. PITAVASTATIN [Suspect]
     Active Substance: PITAVASTATIN
     Indication: Product used for unknown indication
     Dosage: 4 MG, QD
     Route: 048
     Dates: start: 20171229
  2. VALSARTAN [Suspect]
     Active Substance: VALSARTAN
     Indication: Product used for unknown indication
     Dosage: 80 MG, QD
     Route: 048
     Dates: start: 20171229
  3. ALLEGRA [Concomitant]
     Active Substance: FEXOFENADINE HYDROCHLORIDE
     Dosage: UNK
  4. BESZYME [Concomitant]
     Indication: Product used for unknown indication
     Dosage: UNK, UNK
     Route: 048
     Dates: start: 20120402
  5. AMLODIPINE BESYLATE\HYDROCHLOROTHIAZIDE\OLMESARTAN MEDOXOMIL [Concomitant]
     Active Substance: AMLODIPINE BESYLATE\HYDROCHLOROTHIAZIDE\OLMESARTAN MEDOXOMIL
     Indication: Product used for unknown indication
     Dosage: UNK, UNK
     Route: 048
     Dates: start: 20141204
  6. DEFLAZACORT [Concomitant]
     Active Substance: DEFLAZACORT
     Indication: Product used for unknown indication
     Dosage: UNK, UNK
     Route: 048
     Dates: start: 20100906
  7. GODEX [Concomitant]
     Indication: Product used for unknown indication
     Dosage: UNK, UNK
     Route: 048
     Dates: start: 20171113
  8. REBAMIPIDE [Concomitant]
     Active Substance: REBAMIPIDE
     Indication: Product used for unknown indication
     Dosage: UNK, UNK
     Route: 048
     Dates: start: 20100726
  9. Oxyklorin [Concomitant]
     Indication: Product used for unknown indication
     Dosage: UNK, UNK
     Route: 048
     Dates: start: 20100726
  10. COMTHYROID [Concomitant]
     Indication: Product used for unknown indication
     Dosage: UNK, UNK
     Route: 048
     Dates: start: 20170313
  11. SYNTHROID [Concomitant]
     Active Substance: LEVOTHYROXINE SODIUM
     Indication: Product used for unknown indication
     Dosage: UNK, UNK
     Route: 048
     Dates: start: 20170605
  12. DILTIAZEM HYDROCHLORIDE [Concomitant]
     Active Substance: DILTIAZEM HYDROCHLORIDE
     Indication: Product used for unknown indication
     Dosage: UNK, UNK
     Route: 048
     Dates: start: 20171002
  13. NICORANDIL [Concomitant]
     Active Substance: NICORANDIL
     Indication: Acute myocardial infarction
     Dosage: UNK, UNK
     Route: 048
     Dates: start: 20171019
  14. VASTINAN MR [Concomitant]
     Indication: Acute myocardial infarction
     Dosage: UNK, UNK
     Dates: start: 20171019
  15. ASPIRIN [Concomitant]
     Active Substance: ASPIRIN
     Indication: Acute myocardial infarction
     Dosage: UNK, UNK
     Route: 048
     Dates: start: 20170213
  16. AJU VESSEL DUE [Concomitant]
     Indication: Product used for unknown indication
     Dosage: UNK, UNK
     Route: 048
  17. EFFIENT [Concomitant]
     Active Substance: PRASUGREL HYDROCHLORIDE
     Indication: Acute myocardial infarction
     Dosage: UNK, UNK
     Route: 048
     Dates: start: 20171229
  18. PANTOPRAZOLE SODIUM [Concomitant]
     Active Substance: PANTOPRAZOLE SODIUM
     Indication: Product used for unknown indication
     Dosage: UNK, UNK
     Route: 048
     Dates: start: 20120305

REACTIONS (1)
  - Seizure [Recovered/Resolved]

NARRATIVE: CASE EVENT DATE: 20180227
